FAERS Safety Report 8405102-0 (Version None)
Quarter: 2012Q2

REPORT INFORMATION
  Report Type: 
  Country: None (occurrence: None)
  Receive Date: 20120602
  Receipt Date: 20120522
  Transmission Date: 20120825
  Serious: Yes (Other)
  Sender: FDA-Public Use
  Company Number: DE-VALEANT-2012VX002428

PATIENT

DRUGS (7)
  1. DIMETINDENE [Concomitant]
     Route: 065
  2. CARBOPLATIN [Suspect]
     Dosage: DOSE UNIT:70
     Route: 042
  3. CETUXIMAB [Suspect]
     Dosage: DOSE UNIT:400
     Route: 042
  4. THERAPEUTIC RADIOPHARMACEUTICALS [Suspect]
     Route: 065
  5. CETUXIMAB [Suspect]
     Dosage: DOSE UNIT:250
     Route: 042
  6. DEXAMETHASONE [Concomitant]
     Route: 065
  7. FLUOROURACIL [Suspect]
     Dosage: DOSE UNIT:600
     Route: 042

REACTIONS (1)
  - ABDOMINAL WALL ABSCESS [None]
